FAERS Safety Report 6253704-2 (Version None)
Quarter: 2009Q2

REPORT INFORMATION
  Report Type: 
  Country: None (occurrence: None)
  Receive Date: 20090630
  Receipt Date: 20090616
  Transmission Date: 20091009
  Serious: Yes (Hospitalization)
  Sender: FDA-Public Use
  Company Number: 2009-198956-NL

PATIENT
  Age: 24 Year
  Sex: Female
  Weight: 69.4 kg

DRUGS (1)
  1. NUVARING [Suspect]
     Indication: CONTRACEPTION
     Dosage: 1 NEW RING EVERY WEEK, 3 WEEKS LONG, WITH 1 RING-FREE WEEK

REACTIONS (3)
  - CONVULSION [None]
  - DRUG PRESCRIBING ERROR [None]
  - OVERDOSE [None]
